FAERS Safety Report 16947086 (Version 2)
Quarter: 2019Q4

REPORT INFORMATION
  Report Type: Spontaneous
  Country: US (occurrence: US)
  Receive Date: 20191022
  Receipt Date: 20191029
  Transmission Date: 20200122
  Serious: Yes (Death, Hospitalization)
  Sender: FDA-Public Use
  Company Number: US-ACTELION-A-NJ2019-197080

PATIENT
  Age: 60 Year
  Sex: Female

DRUGS (1)
  1. OPSUMIT [Suspect]
     Active Substance: MACITENTAN
     Indication: RAYNAUD^S PHENOMENON
     Dosage: 10 MG, QD
     Route: 048
     Dates: start: 20190612

REACTIONS (2)
  - Atrial fibrillation [Unknown]
  - Death [Fatal]

NARRATIVE: CASE EVENT DATE: 20191011
